FAERS Safety Report 11301867 (Version 1)
Quarter: 2015Q3

REPORT INFORMATION
  Report Type: Spontaneous
  Country: PL (occurrence: None)
  Receive Date: 20150722
  Receipt Date: 20150722
  Transmission Date: 20151125
  Serious: Yes (Other)
  Sender: FDA-Public Use
  Company Number: COR_00331_2015

PATIENT
  Age: 21 Year
  Sex: Female

DRUGS (3)
  1. VEPESID [Suspect]
     Active Substance: ETOPOSIDE
     Indication: LEUKAEMIA RECURRENT
     Dosage: DF
     Dates: start: 2011
  2. CYTARABINE (CYTARABINE) [Suspect]
     Active Substance: CYTARABINE
     Indication: LEUKAEMIA RECURRENT
     Dosage: DF
     Dates: start: 2011
  3. EPIRUBICIN [Suspect]
     Active Substance: EPIRUBICIN
     Indication: LEUKAEMIA RECURRENT
     Dosage: DF
     Dates: start: 2015

REACTIONS (6)
  - Malignant neoplasm progression [None]
  - Pyrexia [None]
  - Acute lymphocytic leukaemia recurrent [None]
  - Multi-organ failure [None]
  - Neutropenia [None]
  - Fungal test positive [None]

NARRATIVE: CASE EVENT DATE: 2011
